FAERS Safety Report 5096476-X (Version None)
Quarter: 2006Q3

REPORT INFORMATION
  Report Type: 
  Country: None (occurrence: None)
  Receive Date: 20060830
  Receipt Date: 20060814
  Transmission Date: 20061208
  Serious: Yes (Other)
  Sender: FDA-Public Use
  Company Number: 8018433

PATIENT
  Age: 7 Year
  Sex: Male

DRUGS (2)
  1. KEPPRA [Suspect]
     Indication: CONVULSION
     Dosage: NI/D
     Dates: start: 20060706, end: 20060802
  2. VALPROATE SODIUM [Concomitant]

REACTIONS (15)
  - AGITATION [None]
  - ANXIETY [None]
  - CONVULSION [None]
  - COORDINATION ABNORMAL [None]
  - DYSPEPSIA [None]
  - FEAR [None]
  - FLATULENCE [None]
  - GASTROINTESTINAL MOTILITY DISORDER [None]
  - HOSTILITY [None]
  - INSOMNIA [None]
  - MENINGITIS PNEUMOCOCCAL [None]
  - PERSONALITY CHANGE [None]
  - PSYCHOMOTOR RETARDATION [None]
  - SCREAMING [None]
  - TREMOR [None]
